FAERS Safety Report 18076504 (Version 4)
Quarter: 2020Q4

REPORT INFORMATION
  Report Type: Spontaneous
  Country: PL (occurrence: PL)
  Receive Date: 20200728
  Receipt Date: 20201005
  Transmission Date: 20210113
  Serious: Yes (Hospitalization)
  Sender: FDA-Public Use
  Company Number: PL-BIOGEN-2020BI00901917

PATIENT
  Age: 28 Year
  Sex: Male

DRUGS (4)
  1. PLEGRIDY [Suspect]
     Active Substance: PEGINTERFERON BETA-1A
     Indication: PRODUCT USED FOR UNKNOWN INDICATION
     Route: 058
  2. PLEGRIDY [Suspect]
     Active Substance: PEGINTERFERON BETA-1A
     Route: 065
     Dates: start: 20190724, end: 20190806
  3. PLEGRIDY [Suspect]
     Active Substance: PEGINTERFERON BETA-1A
     Route: 065
     Dates: start: 20190807, end: 20200624
  4. PLEGRIDY [Suspect]
     Active Substance: PEGINTERFERON BETA-1A
     Indication: PRODUCT USED FOR UNKNOWN INDICATION
     Route: 065
     Dates: start: 20190710, end: 20190723

REACTIONS (1)
  - Pulmonary sarcoidosis [Not Recovered/Not Resolved]

NARRATIVE: CASE EVENT DATE: 202003
